FAERS Safety Report 6209621-7 (Version None)
Quarter: 2009Q2

REPORT INFORMATION
  Report Type: 
  Country: None (occurrence: None)
  Receive Date: 20090601
  Receipt Date: 20090520
  Transmission Date: 20091009
  Serious: Yes (Hospitalization)
  Sender: FDA-Public Use
  Company Number: US-ALEXION-A200900378

PATIENT
  Sex: Male

DRUGS (16)
  1. SOLIRIS [Suspect]
     Indication: PAROXYSMAL NOCTURNAL HAEMOGLOBINURIA
     Dosage: 600 MG, QW
     Route: 042
     Dates: start: 20070713, end: 20070803
  2. SOLIRIS [Suspect]
     Dosage: 900 MG, UNK
     Route: 042
     Dates: start: 20070810, end: 20081003
  3. SOLIRIS [Suspect]
     Dosage: UNK
     Route: 042
     Dates: start: 20081006
  4. SOLIRIS [Suspect]
     Dosage: UNK
     Route: 042
  5. SOLIRIS [Suspect]
     Dosage: 600 MG, QW
     Route: 042
     Dates: start: 20090305, end: 20090323
  6. SOLIRIS [Suspect]
     Dosage: 900 MG, UNK
     Route: 042
     Dates: start: 20090101, end: 20090415
  7. CYCLOSPORINE [Concomitant]
     Dosage: UNK
  8. METOPROLOL SUCCINATE [Concomitant]
     Dosage: 50 MG, BID
  9. OXYCONTIN [Concomitant]
     Dosage: 40 MG, BID
  10. ZOFRAN [Concomitant]
  11. INSULIN [Concomitant]
     Dosage: PUMP
  12. LOTREL [Concomitant]
     Dosage: 10/40, QD
  13. LOVENOX [Concomitant]
     Dosage: 80 MG, BID
  14. FOLIC ACID [Concomitant]
  15. LORAZEPAM [Concomitant]
  16. DILAUDID [Concomitant]

REACTIONS (3)
  - BACTERIAL SEPSIS [None]
  - FEBRILE NEUTROPENIA [None]
  - LIVER FUNCTION TEST ABNORMAL [None]
